FAERS Safety Report 21907789 (Version 1)
Quarter: 2023Q1

REPORT INFORMATION
  Report Type: Spontaneous
  Country: SE (occurrence: SE)
  Receive Date: 20230125
  Receipt Date: 20230125
  Transmission Date: 20230418
  Serious: Yes (Other)
  Sender: FDA-Public Use
  Company Number: None

PATIENT
  Age: 4 Year
  Sex: Female
  Weight: 20 kg

DRUGS (2)
  1. EBASTINE [Suspect]
     Active Substance: EBASTINE
     Dosage: 0.5 MG/ML 2.5 ML 1 TIME (ONCE) DAILY
     Route: 048
     Dates: start: 20210617, end: 20210618
  2. EBASTINE [Suspect]
     Active Substance: EBASTINE
     Indication: Allergy to arthropod bite
     Dosage: 0.5 MG/ML 2.5 ML 1 TIME (ONCE) DAILY
     Route: 048
     Dates: start: 20210617, end: 20210618

REACTIONS (3)
  - Aggression [Recovered/Resolved]
  - Anger [Recovered/Resolved]
  - Personality change [Recovered/Resolved]

NARRATIVE: CASE EVENT DATE: 20210618
